FAERS Safety Report 24349193 (Version 1)
Quarter: 2024Q3

REPORT INFORMATION
  Report Type: Spontaneous
  Country: US (occurrence: US)
  Receive Date: 20240923
  Receipt Date: 20240923
  Transmission Date: 20241017
  Serious: No
  Sender: ASTELLAS
  Company Number: US-ASTELLAS-2024-AER-006793

PATIENT
  Age: 47 Year

DRUGS (1)
  1. VEOZAH [Suspect]
     Active Substance: FEZOLINETANT
     Indication: Flushing
     Route: 065
     Dates: start: 20240705

REACTIONS (1)
  - Hyperhidrosis [Unknown]
